FAERS Safety Report 14875864 (Version 1)
Quarter: 2018Q2

REPORT INFORMATION
  Report Type: Spontaneous
  Country: US (occurrence: US)
  Receive Date: 20180424
  Receipt Date: 20180424
  Transmission Date: 20180711
  Serious: Yes (Hospitalization)
  Sender: FDA-Public Use
  Company Number: None

PATIENT
  Age: 50 Year
  Sex: Female
  Weight: 95.71 kg

DRUGS (2)
  1. GAMMAGARD S/D [Suspect]
     Active Substance: HUMAN IMMUNOGLOBULIN G
     Indication: IMMUNODEFICIENCY COMMON VARIABLE
     Dosage: OTHER FREQUENCY:QDX1 DAY Q3WKS;?
     Route: 042
     Dates: start: 20170322, end: 20180416
  2. SOD CHL 0.9% FLUSH L/L 10ML/SYR [Suspect]
     Active Substance: SODIUM CHLORIDE
     Route: 042
     Dates: start: 20180305, end: 20180416

REACTIONS (1)
  - Appendicitis [None]
